FAERS Safety Report 6150793-0 (Version None)
Quarter: 2009Q2

REPORT INFORMATION
  Report Type: 
  Country: None (occurrence: None)
  Receive Date: 20090408
  Receipt Date: 20090326
  Transmission Date: 20091009
  Serious: Yes (Other)
  Sender: FDA-Public Use
  Company Number: 310015K09USA

PATIENT
  Age: 36 Year
  Sex: Female

DRUGS (3)
  1. GONAL-F [Suspect]
     Indication: INFERTILITY
     Dosage: 150 IU ; 300 IU ; 450 IU
     Dates: start: 20080801
  2. GONAL-F [Suspect]
     Indication: INFERTILITY
     Dosage: 150 IU ; 300 IU ; 450 IU
     Dates: start: 20080901
  3. GONAL-F [Suspect]
     Indication: INFERTILITY
     Dosage: 150 IU ; 300 IU ; 450 IU
     Dates: start: 20090101

REACTIONS (2)
  - ABORTION SPONTANEOUS [None]
  - DRUG EXPOSURE DURING PREGNANCY [None]
